FAERS Safety Report 9772226 (Version 1)
Quarter: 2013Q4

REPORT INFORMATION
  Report Type: Spontaneous
  Country: US (occurrence: None)
  Receive Date: 20131218
  Receipt Date: 20131218
  Transmission Date: 20140711
  Serious: Yes (Death)
  Sender: FDA-Public Use
  Company Number: None

PATIENT
  Age: 78 Year
  Sex: Female

DRUGS (1)
  1. ARANESP [Suspect]
     Dosage: EVERY 4 WEEKS
     Route: 058
     Dates: start: 201307, end: 201311

REACTIONS (1)
  - Cerebrovascular accident [None]
